FAERS Safety Report 6170367-5 (Version None)
Quarter: 2009Q2

REPORT INFORMATION
  Report Type: 
  Country: None (occurrence: None)
  Receive Date: 20090428
  Receipt Date: 20090424
  Transmission Date: 20091009
  Serious: Yes (Other)
  Sender: FDA-Public Use
  Company Number: US-MERCK-0904USA03903

PATIENT
  Sex: Female

DRUGS (3)
  1. FOSAMAX [Suspect]
     Route: 048
  2. AROMASIN [Suspect]
     Route: 065
  3. EVISTA [Suspect]
     Route: 065

REACTIONS (3)
  - BONE PAIN [None]
  - CHEST PAIN [None]
  - MYOCARDIAL INFARCTION [None]
